FAERS Safety Report 10745792 (Version 1)
Quarter: 2015Q1

REPORT INFORMATION
  Report Type: Report from Study
  Country: GR (occurrence: GR)
  Receive Date: 20150128
  Receipt Date: 20150128
  Transmission Date: 20150721
  Serious: Yes (Other)
  Sender: FDA-Public Use
  Company Number: GR-ABBVIE-15K-066-1338770-00

PATIENT
  Age: 34 Year
  Sex: Female

DRUGS (1)
  1. HUMIRA [Suspect]
     Active Substance: ADALIMUMAB
     Indication: ANKYLOSING SPONDYLITIS
     Route: 058
     Dates: start: 20140224, end: 201501

REACTIONS (1)
  - Cutaneous lupus erythematosus [Not Recovered/Not Resolved]

NARRATIVE: CASE EVENT DATE: 201501
